FAERS Safety Report 5744597-8 (Version None)
Quarter: 2008Q2

REPORT INFORMATION
  Report Type: 
  Country: None (occurrence: None)
  Receive Date: 20080520
  Receipt Date: 20080123
  Transmission Date: 20081010
  Serious: No
  Sender: FDA-Public Use
  Company Number: US-ABBOTT-08P-163-0434868-00

PATIENT
  Sex: Female
  Weight: 72.64 kg

DRUGS (9)
  1. AZMACORT [Suspect]
     Indication: ASTHMA
     Route: 048
     Dates: start: 20080117, end: 20080117
  2. RANITIDINE HYDROCHLORIDE [Concomitant]
     Indication: DRUG USE FOR UNKNOWN INDICATION
     Route: 048
     Dates: start: 20010101
  3. AMITRIPOLINE [Concomitant]
     Indication: ANXIETY
     Route: 048
     Dates: start: 20050101
  4. AMITRIPOLINE [Concomitant]
     Indication: NERVE INJURY
  5. VALSARTAN [Concomitant]
     Indication: HYPERTENSION
     Route: 048
  6. SALBUTAMOL SULFATE [Concomitant]
     Indication: ASTHMA
     Route: 048
  7. HYDRALAZINE HCL [Concomitant]
     Indication: DRUG USE FOR UNKNOWN INDICATION
     Route: 048
  8. ATORVASTATIN CALCIUM [Concomitant]
     Indication: BLOOD CHOLESTEROL
     Route: 048
  9. METOPROLOL SUCCINATE [Concomitant]
     Indication: HYPERTENSION
     Route: 048

REACTIONS (6)
  - DIZZINESS [None]
  - HYPERTENSION [None]
  - PYREXIA [None]
  - RASH PAPULAR [None]
  - SYNCOPE [None]
  - VOMITING [None]
